FAERS Safety Report 4339482-2 (Version None)
Quarter: 2004Q2

REPORT INFORMATION
  Report Type: 
  Country: None (occurrence: None)
  Receive Date: 20040415
  Receipt Date: 20030428
  Transmission Date: 20050107
  Serious: Yes (Other)
  Sender: FDA-Public Use
  Company Number: FR-BRISTOL-MYERS SQUIBB COMPANY-12257671

PATIENT
  Age: 67 Year
  Sex: Male

DRUGS (6)
  1. COAPROVEL [Suspect]
     Dosage: DURATION: ^A FEW YEARS^
     Route: 048
  2. KARDEGIC [Concomitant]
     Route: 048
  3. OGAST [Concomitant]
     Route: 048
  4. REQUIP [Concomitant]
     Route: 048
  5. SELECTOL [Concomitant]
     Route: 048
  6. ELISOR [Concomitant]
     Route: 048

REACTIONS (2)
  - ACUTE MYELOMONOCYTIC LEUKAEMIA [None]
  - NEUTROPENIA [None]
